FAERS Safety Report 4299127-7 (Version None)
Quarter: 2004Q1

REPORT INFORMATION
  Report Type: 
  Country: None (occurrence: None)
  Receive Date: 20040217
  Receipt Date: 20040202
  Transmission Date: 20041129
  Serious: Yes (Death)
  Sender: FDA-Public Use
  Company Number: 04H-163-0249088-00

PATIENT
  Age: 83 Year
  Sex: Male
  Weight: 79.8331 kg

DRUGS (2)
  1. VANCOMYCIN HYDROCHLORIDE [Suspect]
     Indication: INFECTION
     Dosage: 2 GM, THREE TIMES A WEEK, INTRAPERITONEAL; 25 MG
     Route: 033
     Dates: start: 20040101, end: 20040101
  2. VANCOMYCIN HYDROCHLORIDE [Suspect]
     Indication: INFECTION
     Dosage: 2 GM, THREE TIMES A WEEK, INTRAPERITONEAL; 25 MG
     Route: 033
     Dates: start: 20040101, end: 20040101

REACTIONS (4)
  - DRUG INEFFECTIVE [None]
  - IMMUNE SYSTEM DISORDER [None]
  - PAIN [None]
  - SEPSIS [None]
